FAERS Safety Report 13963093 (Version 8)
Quarter: 2018Q2

REPORT INFORMATION
  Report Type: Spontaneous
  Country: US (occurrence: US)
  Receive Date: 20170913
  Receipt Date: 20180419
  Transmission Date: 20180711
  Serious: Yes (Other)
  Sender: FDA-Public Use
  Company Number: US-PFIZER INC-2017393128

PATIENT
  Age: 54 Year
  Sex: Female
  Weight: 70.3 kg

DRUGS (6)
  1. IBRANCE [Suspect]
     Active Substance: PALBOCICLIB
     Dosage: 100 MG, CYCLIC (DAY1-21 EVERY 28 DAYS)
     Route: 048
     Dates: start: 20170928
  2. IBRANCE [Suspect]
     Active Substance: PALBOCICLIB
     Dosage: 100 MG, CYCLIC (DAY1-21 EVERY 28 DAYS)
     Route: 048
     Dates: start: 20170825, end: 201711
  3. IBRANCE [Suspect]
     Active Substance: PALBOCICLIB
     Dosage: 100 MG, CYCLIC (DAY 1-21 Q 28 DAYS)
     Route: 048
     Dates: start: 20171227
  4. IBRANCE [Suspect]
     Active Substance: PALBOCICLIB
     Indication: BREAST CANCER METASTATIC
     Dosage: 125 MG, CYCLIC (DAY1-21 EVERY 28 DAYS)
     Route: 048
     Dates: start: 20170825, end: 201709
  5. IBRANCE [Suspect]
     Active Substance: PALBOCICLIB
     Dosage: 100 MG, CYCLIC (DAY 1-21 Q 28 DAYS)
     Route: 048
     Dates: start: 20170825
  6. IBRANCE [Suspect]
     Active Substance: PALBOCICLIB
     Dosage: 100 MG, CYCLIC (1 WEEK ON AND 1 WEEK OFF)
     Route: 048

REACTIONS (20)
  - Stomatitis [Unknown]
  - Fatigue [Not Recovered/Not Resolved]
  - Head injury [Unknown]
  - Drug dose omission [Unknown]
  - Loss of consciousness [Unknown]
  - Fall [Unknown]
  - Gastritis [Unknown]
  - Muscular weakness [Unknown]
  - Pyrexia [Unknown]
  - Malaise [Unknown]
  - Nasopharyngitis [Unknown]
  - Spinal compression fracture [Unknown]
  - Inflammation [Unknown]
  - Spinal fracture [Unknown]
  - Dizziness [Unknown]
  - Alopecia [Unknown]
  - White blood cell count decreased [Not Recovered/Not Resolved]
  - Red blood cell count decreased [Not Recovered/Not Resolved]
  - Sinusitis [Unknown]
  - Neuropathy peripheral [Unknown]

NARRATIVE: CASE EVENT DATE: 201710
